FAERS Safety Report 13222502 (Version 2)
Quarter: 2017Q1

REPORT INFORMATION
  Report Type: Spontaneous
  Country: US (occurrence: US)
  Receive Date: 20170212
  Receipt Date: 20170223
  Transmission Date: 20170428
  Serious: No
  Sender: FDA-Public Use
  Company Number: US-ELI_LILLY_AND_COMPANY-US201702003283

PATIENT
  Age: 61 Year
  Sex: Male

DRUGS (2)
  1. FORTEO [Suspect]
     Active Substance: TERIPARATIDE
     Dosage: UNK, UNKNOWN
     Route: 065
     Dates: start: 20170212, end: 20170218
  2. FORTEO [Suspect]
     Active Substance: TERIPARATIDE
     Indication: FRACTURE DELAYED UNION
     Dosage: UNK, UNKNOWN
     Route: 065
     Dates: start: 20161107

REACTIONS (5)
  - Musculoskeletal stiffness [Unknown]
  - Off label use [Unknown]
  - Road traffic accident [Unknown]
  - Neck pain [Unknown]
  - Headache [Unknown]

NARRATIVE: CASE EVENT DATE: 20161107
